FAERS Safety Report 5867509-5 (Version None)
Quarter: 2008Q3

REPORT INFORMATION
  Report Type: 
  Country: None (occurrence: None)
  Receive Date: 20080902
  Receipt Date: 20070810
  Transmission Date: 20090109
  Serious: No
  Sender: FDA-Public Use
  Company Number: US-ABBOTT-07P-163-0377688-00

PATIENT
  Age: 51 Year
  Sex: Female
  Weight: 70.37 kg

DRUGS (3)
  1. DEPAKOTE ER [Suspect]
     Indication: CONVULSION
     Route: 048
     Dates: start: 20070808
  2. DEPAKOTE ER [Suspect]
     Dates: end: 20070807
  3. UNKNOWN MEDICATIONS [Concomitant]
     Indication: DRUG USE FOR UNKNOWN INDICATION

REACTIONS (2)
  - DECREASED APPETITE [None]
  - LETHARGY [None]
